FAERS Safety Report 10195635 (Version 1)
Quarter: 2014Q2

REPORT INFORMATION
  Report Type: Spontaneous
  Country: BR (occurrence: BR)
  Receive Date: 20140527
  Receipt Date: 20140527
  Transmission Date: 20141212
  Serious: Yes (Death, Other)
  Sender: FDA-Public Use
  Company Number: BR-ROCHE-1406531

PATIENT
  Sex: Female

DRUGS (1)
  1. ROCEFIN [Suspect]
     Indication: PLEURAL EFFUSION
     Route: 030

REACTIONS (5)
  - Cardiac disorder [Fatal]
  - Hypotension [Unknown]
  - Tachycardia [Unknown]
  - Feeling cold [Unknown]
  - Incorrect route of drug administration [Unknown]
